FAERS Safety Report 12693930 (Version 2)
Quarter: 2016Q3

REPORT INFORMATION
  Report Type: Spontaneous
  Country: FR (occurrence: FR)
  Receive Date: 20160829
  Receipt Date: 20160912
  Transmission Date: 20161109
  Serious: Yes (Hospitalization, Other)
  Sender: FDA-Public Use
  Company Number: FR-PFIZER INC-2016397106

PATIENT
  Age: 77 Year
  Sex: Female

DRUGS (21)
  1. TRIVASTAL [Concomitant]
     Active Substance: PIRIBEDIL
     Indication: PARKINSON^S DISEASE
     Dosage: 50 MG, 1X/DAY
     Route: 048
     Dates: end: 20160615
  2. KLIPAL CODEINE [Interacting]
     Active Substance: ACETAMINOPHEN\CODEINE PHOSPHATE
     Indication: PAIN
     Dosage: 1 DF, 1X/DAY
     Route: 048
     Dates: end: 20160609
  3. COVERSYL [Concomitant]
     Active Substance: PERINDOPRIL
     Dosage: 5 MG, DAILY
  4. LOPERAMIDE [Concomitant]
     Active Substance: LOPERAMIDE
     Dosage: 2 MG, AS NEEDED
  5. PARACETAMOL [Concomitant]
     Active Substance: ACETAMINOPHEN
     Dosage: 1 G AT 2:00 AM, 8:00 AM, NOON, 2:00 PM AND 0.5 G AT 6:00 PM
  6. ACETYLSALICYLIC ACID [Concomitant]
     Active Substance: ASPIRIN
     Dosage: 100 MG, DAILY
  7. SIMVASTATINE [Concomitant]
     Active Substance: SIMVASTATIN
     Dosage: 10 MG, DAILY
  8. UVEDOSE [Concomitant]
     Active Substance: CHOLECALCIFEROL
     Dosage: 2 ML, EVERY 60 DAYS
  9. GLUCAGEN [Concomitant]
     Active Substance: GLUCAGON HYDROCHLORIDE
     Indication: BLOOD GLUCOSE DECREASED
     Dosage: 1 MG/ML, 1 MG MAXIMUM BY INTAKE
  10. ORAMORPH [Interacting]
     Active Substance: MORPHINE SULFATE
     Indication: PAIN
     Dosage: 20 MG/ 1 ML, AS NEEDED
     Route: 048
     Dates: end: 20160609
  11. ROCEPHINE [Interacting]
     Active Substance: CEFTRIAXONE SODIUM
     Indication: INFECTION
     Dosage: 1 G, 1X/DAY
     Route: 058
     Dates: start: 20160516, end: 20160603
  12. MACROGOL 4000 [Concomitant]
     Active Substance: POLYETHYLENE GLYCOL 4000
     Dosage: 1 DF, MONDAYS, WEDNESDAYS AND FRIDAYS
  13. ECONAZOLE [Concomitant]
     Active Substance: ECONAZOLE
     Dosage: 1 DF, 1X/DAY
  14. VERSATIS [Concomitant]
     Active Substance: LIDOCAINE
     Dosage: 1 DF, 1X/DAY
  15. BROMAZEPAM [Concomitant]
     Active Substance: BROMAZEPAM
     Indication: ANXIETY
     Dosage: 3 MG, 1X/DAY
     Route: 048
     Dates: end: 20160615
  16. EFFEXOR LP [Concomitant]
     Active Substance: VENLAFAXINE HYDROCHLORIDE
     Indication: ANXIETY
     Dosage: 37.5 MG, 2X/DAY
     Route: 048
     Dates: end: 20160615
  17. FLAGYL [Interacting]
     Active Substance: METRONIDAZOLE\METRONIDAZOLE HYDROCHLORIDE
     Indication: INFECTION
     Dosage: 500 MG, UNK
     Route: 048
     Dates: start: 20160516, end: 20160523
  18. LYRICA [Suspect]
     Active Substance: PREGABALIN
     Indication: NEURALGIA
     Dosage: 175 MG, 1X/DAY
     Route: 048
  19. MOPRAL [Concomitant]
     Active Substance: OMEPRAZOLE SODIUM
     Dosage: 20 MG, DAILY
  20. NOVOMIX [Concomitant]
     Active Substance: INSULIN ASPART
     Dosage: 8 IU, 1X/DAY
  21. VOLTARENE [Concomitant]
     Active Substance: DICLOFENAC SODIUM
     Dosage: UNK, AS NEEDED

REACTIONS (13)
  - Drug interaction [Unknown]
  - Pyrexia [Unknown]
  - Crying [Unknown]
  - Confusional state [Recovered/Resolved]
  - Agitation [Unknown]
  - Delirium [Unknown]
  - Hallucination [Recovered/Resolved]
  - Headache [Recovered/Resolved]
  - Escherichia urinary tract infection [Unknown]
  - Streptococcal bacteraemia [Unknown]
  - Weight decreased [Unknown]
  - Aggression [Unknown]
  - Incoherent [Unknown]

NARRATIVE: CASE EVENT DATE: 201601
